FAERS Safety Report 18651628 (Version 1)
Quarter: 2020Q4

REPORT INFORMATION
  Report Type: Spontaneous
  Country: US (occurrence: US)
  Receive Date: 20201223
  Receipt Date: 20201223
  Transmission Date: 20210114
  Serious: Yes (Death, Other)
  Sender: FDA-Public Use
  Company Number: US-SA-2020SA366706

PATIENT

DRUGS (1)
  1. ZANTAC [Suspect]
     Active Substance: RANITIDINE HYDROCHLORIDE
     Indication: DYSPEPSIA
     Dosage: 75 MG, QD
     Dates: start: 201207, end: 201710

REACTIONS (3)
  - Oesophageal carcinoma [Fatal]
  - Hepatic cancer stage II [Fatal]
  - Gastric cancer stage II [Fatal]

NARRATIVE: CASE EVENT DATE: 20171003
